FAERS Safety Report 25008157 (Version 1)
Quarter: 2025Q1

REPORT INFORMATION
  Report Type: Spontaneous
  Country: US (occurrence: US)
  Receive Date: 20250225
  Receipt Date: 20250225
  Transmission Date: 20250409
  Serious: Yes (Other)
  Sender: TEVA
  Company Number: US-TEVA-VS-3292422

PATIENT
  Sex: Female

DRUGS (1)
  1. UZEDY [Suspect]
     Active Substance: RISPERIDONE
     Indication: Schizophrenia
     Dosage: FORM STRENGTH: 200/0.56MG/ML
     Route: 065
     Dates: start: 20241230

REACTIONS (2)
  - Schizophrenia [Unknown]
  - Circumstance or information capable of leading to medication error [Unknown]
